FAERS Safety Report 12006090 (Version 1)
Quarter: 2016Q1

REPORT INFORMATION
  Report Type: Report from Study
  Country: US (occurrence: US)
  Receive Date: 20160204
  Receipt Date: 20160204
  Transmission Date: 20160526
  Serious: No
  Sender: FDA-Public Use
  Company Number: US-ABBVIE-15K-163-1429375-00

PATIENT
  Age: 44 Year
  Sex: Female
  Weight: 77.18 kg

DRUGS (7)
  1. PREDNISONE. [Concomitant]
     Active Substance: PREDNISONE
     Indication: INTERVERTEBRAL DISCITIS
  2. HUMIRA [Suspect]
     Active Substance: ADALIMUMAB
     Indication: IRRITABLE BOWEL SYNDROME
  3. ARMOUR THYROID [Suspect]
     Active Substance: THYROID, PORCINE
     Dosage: 2 TABLETS DAILY: ONE 45 MCG, ONE 30 MCG
     Route: 048
     Dates: start: 2015
  4. FLEXERIL [Concomitant]
     Active Substance: CYCLOBENZAPRINE HYDROCHLORIDE
     Indication: BACK PAIN
  5. HUMIRA [Suspect]
     Active Substance: ADALIMUMAB
     Indication: ANKYLOSING SPONDYLITIS
     Route: 058
     Dates: start: 20141016, end: 201504
  6. HUMIRA [Suspect]
     Active Substance: ADALIMUMAB
     Indication: SPINAL OSTEOARTHRITIS
     Route: 058
     Dates: start: 201504
  7. ARMOUR THYROID [Suspect]
     Active Substance: THYROID, PORCINE
     Indication: HYPOTHYROIDISM
     Dosage: 2 - 30 MCG (BID)
     Route: 048
     Dates: start: 20150918

REACTIONS (11)
  - Irritable bowel syndrome [Recovered/Resolved]
  - Feeling abnormal [Recovered/Resolved]
  - Back pain [Recovering/Resolving]
  - Fatigue [Recovering/Resolving]
  - Ligament sprain [Recovering/Resolving]
  - Amnesia [Recovering/Resolving]
  - Accident [Unknown]
  - Weight increased [Not Recovered/Not Resolved]
  - Red blood cell sedimentation rate increased [Not Recovered/Not Resolved]
  - Blood thyroid stimulating hormone abnormal [Recovering/Resolving]
  - Arthritis [Recovering/Resolving]

NARRATIVE: CASE EVENT DATE: 201504
